FAERS Safety Report 17172272 (Version 1)
Quarter: 2019Q4

REPORT INFORMATION
  Report Type: Spontaneous
  Country: GR (occurrence: GR)
  Receive Date: 20191219
  Receipt Date: 20191219
  Transmission Date: 20200122
  Serious: Yes (Other)
  Sender: FDA-Public Use
  Company Number: GR-PFIZER INC-2019543016

PATIENT
  Age: 74 Year
  Sex: Female

DRUGS (2)
  1. TAVOR (LORAZEPAM) [Suspect]
     Active Substance: LORAZEPAM
     Dosage: 2.5 MG, 1X/DAY
     Dates: start: 2008, end: 2014
  2. TAVOR (LORAZEPAM) [Suspect]
     Active Substance: LORAZEPAM
     Dosage: 2.5 MG, 2X/DAY
     Dates: start: 2014

REACTIONS (6)
  - Gastrointestinal disorder [Unknown]
  - Pain in extremity [Unknown]
  - Muscle disorder [Unknown]
  - Anxiety [Unknown]
  - Spinal fracture [Unknown]
  - Hypotension [Unknown]

NARRATIVE: CASE EVENT DATE: 2014
